FAERS Safety Report 7540594-0 (Version None)
Quarter: 2011Q2

REPORT INFORMATION
  Report Type: 
  Country: None (occurrence: None)
  Receive Date: 20110610
  Receipt Date: 20110607
  Transmission Date: 20111010
  Serious: Yes (Other)
  Sender: FDA-Public Use
  Company Number: US-PFIZER INC-2011092180

PATIENT
  Sex: Male
  Weight: 79.819 kg

DRUGS (3)
  1. CHANTIX [Suspect]
     Indication: SMOKING CESSATION THERAPY
     Dosage: 0.5 MG, 1X/DAY
     Route: 048
     Dates: start: 20110331, end: 20110407
  2. VICODIN [Concomitant]
     Dosage: 5/500 TWICE A DAY
  3. HYDROXYZINE [Concomitant]
     Dosage: 50 MG, AT HOURS SLEEP

REACTIONS (2)
  - PANCREATITIS CHRONIC [None]
  - HAEMORRHAGE [None]
